FAERS Safety Report 4873323-X (Version None)
Quarter: 2006Q1

REPORT INFORMATION
  Report Type: 
  Country: None (occurrence: None)
  Receive Date: 20060105
  Receipt Date: 20051108
  Transmission Date: 20060701
  Serious: Yes (Death, Hospitalization)
  Sender: FDA-Public Use
  Company Number: FR-BRISTOL-MYERS SQUIBB COMPANY-13180088

PATIENT
  Age: 63 Year
  Sex: Male

DRUGS (7)
  1. GLUCOPHAGE [Suspect]
     Indication: DIABETES MELLITUS
     Route: 048
     Dates: end: 20050929
  2. SOTALOL HCL TABS 160 MG [Suspect]
     Route: 048
     Dates: end: 20050929
  3. APROVEL [Suspect]
     Indication: ESSENTIAL HYPERTENSION
     Dates: end: 20050929
  4. AMAREL [Suspect]
     Indication: DIABETES MELLITUS
     Route: 048
     Dates: end: 20050929
  5. FLUDEX [Suspect]
     Indication: ESSENTIAL HYPERTENSION
     Route: 048
     Dates: end: 20050929
  6. LIPANTHYL [Suspect]
     Indication: HYPERTRIGLYCERIDAEMIA
     Dates: end: 20050929
  7. PHYSIOTENS [Suspect]
     Indication: ESSENTIAL HYPERTENSION
     Route: 048
     Dates: end: 20050929

REACTIONS (13)
  - BLOOD LACTIC ACID INCREASED [None]
  - COLITIS [None]
  - DEHYDRATION [None]
  - DIARRHOEA [None]
  - ENTERITIS [None]
  - HYPOVOLAEMIA [None]
  - INTESTINAL ISCHAEMIA [None]
  - NAUSEA [None]
  - RENAL FAILURE ACUTE [None]
  - RHABDOMYOLYSIS [None]
  - SEPTIC SHOCK [None]
  - STAPHYLOCOCCAL BACTERAEMIA [None]
  - VOMITING [None]
